FAERS Safety Report 9639839 (Version 2)
Quarter: 2013Q4

REPORT INFORMATION
  Report Type: Report from Study
  Country: CA (occurrence: CA)
  Receive Date: 20131023
  Receipt Date: 20131023
  Transmission Date: 20140711
  Serious: Yes (Hospitalization)
  Sender: FDA-Public Use
  Company Number: CA-JNJFOC-20130909679

PATIENT
  Age: 2 Year
  Sex: Male
  Weight: 12 kg

DRUGS (1)
  1. REMICADE [Suspect]
     Indication: COLITIS ULCERATIVE
     Dosage: 100 (UNIT UNSPECIFIED)
     Route: 042
     Dates: start: 20121108

REACTIONS (3)
  - Colitis ulcerative [Unknown]
  - Haemorrhage [Unknown]
  - Off label use [Unknown]
